FAERS Safety Report 4557950-5 (Version None)
Quarter: 2005Q1

REPORT INFORMATION
  Report Type: 
  Country: None (occurrence: None)
  Receive Date: 20050121
  Receipt Date: 20040226
  Transmission Date: 20050727
  Serious: No
  Sender: FDA-Public Use
  Company Number: US-BRISTOL-MYERS SQUIBB COMPANY-12518296

PATIENT
  Sex: Female
  Weight: 82 kg

DRUGS (4)
  1. SERZONE [Suspect]
     Route: 048
  2. NEURONTIN [Concomitant]
  3. LAMICTAL [Concomitant]
  4. SONATA [Concomitant]

REACTIONS (2)
  - PHOTOSENSITIVITY REACTION [None]
  - TEMPERATURE INTOLERANCE [None]
